FAERS Safety Report 16191539 (Version 2)
Quarter: 2019Q2

REPORT INFORMATION
  Report Type: Report from Study
  Country: JP (occurrence: JP)
  Receive Date: 20190412
  Receipt Date: 20190624
  Transmission Date: 20190711
  Serious: Yes (Life-Threatening, Hospitalization, Other)
  Sender: FDA-Public Use
  Company Number: JP-GLAXOSMITHKLINE-JP2019JPN049251

PATIENT
  Age: 30 Year
  Sex: Female
  Weight: 42 kg

DRUGS (9)
  1. BELIMUMAB [Suspect]
     Active Substance: BELIMUMAB
     Dosage: 400MG, ONCE IN EVERY FOUR WEEKS
     Route: 041
     Dates: start: 20190108, end: 20190304
  2. PREDONINE [Concomitant]
     Active Substance: PREDNISOLONE
     Dosage: 14 MG, 1D
     Dates: start: 20181203, end: 20190107
  3. BELIMUMAB [Suspect]
     Active Substance: BELIMUMAB
     Indication: SYSTEMIC LUPUS ERYTHEMATOSUS
     Dosage: 400MG, ONCE IN EVERY TWO WEEKS
     Route: 041
     Dates: start: 20181203, end: 20190107
  4. PREDONINE [Concomitant]
     Active Substance: PREDNISOLONE
     Indication: SYSTEMIC LUPUS ERYTHEMATOSUS
     Dosage: 14 MG, 1D
     Dates: start: 20110228
  5. PREDONINE [Concomitant]
     Active Substance: PREDNISOLONE
     Dosage: 13 MG, 1D
     Dates: start: 20190107, end: 20190204
  6. PREDONINE [Concomitant]
     Active Substance: PREDNISOLONE
     Dosage: 22 MG, 1D
     Dates: start: 20190408
  7. PLAQUENIL [Suspect]
     Active Substance: HYDROXYCHLOROQUINE SULFATE
     Indication: SYSTEMIC LUPUS ERYTHEMATOSUS
     Dosage: 200MG, 400MG ALTERNATE DAY
     Route: 048
     Dates: start: 20170925, end: 20190304
  8. PREDONINE [Concomitant]
     Active Substance: PREDNISOLONE
     Dosage: 12 MG, 1D
     Dates: start: 20190204, end: 20190408
  9. PROGRAF [Suspect]
     Active Substance: TACROLIMUS\TACROLIMUS ANHYDROUS
     Indication: SYSTEMIC LUPUS ERYTHEMATOSUS
     Dosage: 3 MG, 1D
     Route: 048
     Dates: start: 20180507, end: 20190304

REACTIONS (3)
  - Anaemia [Not Recovered/Not Resolved]
  - Aplasia pure red cell [Not Recovered/Not Resolved]
  - Red blood cell count decreased [Recovering/Resolving]

NARRATIVE: CASE EVENT DATE: 20190107
